FAERS Safety Report 20778018 (Version 1)
Quarter: 2022Q2

REPORT INFORMATION
  Report Type: Spontaneous
  Country: JP (occurrence: JP)
  Receive Date: 20220503
  Receipt Date: 20220503
  Transmission Date: 20220721
  Serious: Yes (Death, Life-Threatening, Hospitalization, Other)
  Sender: FDA-Public Use
  Company Number: JP-MLMSERVICE-20220420-3510819-3

PATIENT
  Age: 76 Year
  Sex: Male

DRUGS (5)
  1. PRASUGREL [Suspect]
     Active Substance: PRASUGREL
     Indication: Myocardial ischaemia
  2. HEPARIN SODIUM [Suspect]
     Active Substance: HEPARIN SODIUM
     Indication: Anticoagulant therapy
     Dosage: CONTINUOUS, TOTAL OF 4000 U/SESSION
     Route: 042
  3. HEPARIN CALCIUM [Suspect]
     Active Substance: HEPARIN CALCIUM
     Indication: Prophylaxis
     Route: 058
  4. OXYGEN [Concomitant]
     Active Substance: OXYGEN
     Indication: COVID-19 pneumonia
  5. DEXAMETHASONE [Concomitant]
     Active Substance: DEXAMETHASONE
     Indication: COVID-19 pneumonia

REACTIONS (5)
  - Retroperitoneal haemorrhage [Fatal]
  - Multiple organ dysfunction syndrome [Fatal]
  - Respiratory failure [Fatal]
  - Muscle haemorrhage [Fatal]
  - Acute respiratory distress syndrome [Fatal]
